FAERS Safety Report 14675498 (Version 4)
Quarter: 2018Q2

REPORT INFORMATION
  Report Type: Report from Study
  Country: PA (occurrence: PA)
  Receive Date: 20180323
  Receipt Date: 20180418
  Transmission Date: 20180711
  Serious: Yes (Hospitalization, Other)
  Sender: FDA-Public Use
  Company Number: PHHY2018PA047560

PATIENT
  Sex: Female

DRUGS (2)
  1. TASIGNA [Suspect]
     Active Substance: NILOTINIB
     Dosage: 150 MG (ONE IN MORNING AND ANOTHER IN AFTERNOON)
     Route: 065
  2. TASIGNA [Suspect]
     Active Substance: NILOTINIB
     Indication: CHRONIC MYELOID LEUKAEMIA
     Dosage: 2 DF, BID
     Route: 065
     Dates: start: 2001

REACTIONS (5)
  - Uterine cancer [Unknown]
  - Second primary malignancy [Unknown]
  - Pancreatic enlargement [Unknown]
  - Abdominal distension [Unknown]
  - Abdominal pain [Unknown]
